FAERS Safety Report 5179742-9 (Version None)
Quarter: 2006Q4

REPORT INFORMATION
  Report Type: 
  Country: None (occurrence: None)
  Receive Date: 20061211
  Receipt Date: 20061127
  Transmission Date: 20070319
  Serious: Yes (Death)
  Sender: FDA-Public Use
  Company Number: 2006145304

PATIENT

DRUGS (1)
  1. LINEZOLID [Suspect]
     Dates: end: 20060224

REACTIONS (1)
  - DEATH [None]
